FAERS Safety Report 9387271 (Version 1)
Quarter: 2013Q3

REPORT INFORMATION
  Report Type: Spontaneous
  Country: CN (occurrence: None)
  Receive Date: 20130702
  Receipt Date: 20130702
  Transmission Date: 20140515
  Serious: Yes (Other)
  Sender: FDA-Public Use
  Company Number: FK201302230

PATIENT
  Age: 47 Year
  Sex: Male

DRUGS (1)
  1. INTRALIPID [Suspect]
     Indication: APPENDICITIS
     Dosage: (NOT OTHERWISE SPECIFIED)
     Route: 042
     Dates: start: 20120728, end: 20120728

REACTIONS (2)
  - Chills [None]
  - Pyrexia [None]
